FAERS Safety Report 20405159 (Version 2)
Quarter: 2022Q1

REPORT INFORMATION
  Report Type: Report from Study
  Country: CN (occurrence: None)
  Receive Date: 20220131
  Receipt Date: 20220201
  Transmission Date: 20220423
  Serious: Yes (Hospitalization)
  Sender: FDA-Public Use
  Company Number: CN-ROCHE-3005975

PATIENT
  Age: 61 Year
  Sex: Female
  Weight: 76.5 kg

DRUGS (3)
  1. ENTRECTINIB [Suspect]
     Active Substance: ENTRECTINIB
     Indication: Neoplasm
     Dosage: LAST DOSE OF STUDY DRUG WAS ADMINISTERED ON 12/JAN/2022
     Route: 048
     Dates: start: 20210618
  2. SODIUM CHLORIDE [Concomitant]
     Active Substance: SODIUM CHLORIDE
     Dosage: 0.9% SODIUM CHLORIDE INJECTION; 100 ML, 1 VIAL, IVGTT, QD
     Route: 042
     Dates: start: 20220118, end: 20220120
  3. SODIUM CHLORIDE [Concomitant]
     Active Substance: SODIUM CHLORIDE
     Dosage: 0.9% SODIUM CHLORIDE INJECTION; 20 ML, 0.4 BAG, IVGTT, QD
     Route: 042
     Dates: start: 20220118, end: 20220120

REACTIONS (1)
  - Renal impairment [Recovered/Resolved]

NARRATIVE: CASE EVENT DATE: 20211229
